FAERS Safety Report 13219138 (Version 2)
Quarter: 2019Q4

REPORT INFORMATION
  Report Type: Spontaneous
  Country: US (occurrence: US)
  Receive Date: 20170210
  Receipt Date: 20191025
  Transmission Date: 20200122
  Serious: No
  Sender: FDA-Public Use
  Company Number: US-ASTRAZENECA-2017SE14739

PATIENT
  Age: 88 Year
  Sex: Female
  Weight: 67.6 kg

DRUGS (6)
  1. VITAMIN B12 [Concomitant]
     Active Substance: CYANOCOBALAMIN
     Indication: ROUTINE HEALTH MAINTENANCE
     Dosage: 1DF
     Route: 065
  2. OMEPRAZOLE. [Concomitant]
     Active Substance: OMEPRAZOLE
     Indication: DYSPEPSIA
     Dosage: 1DF
     Route: 065
  3. RHINOCORT ALLERGY [Suspect]
     Active Substance: BUDESONIDE
     Indication: MULTIPLE ALLERGIES
     Dosage: 2 SPRAYS IN EACH NOSTRIL; ABOUT MID NOVEMBER 2016 UNTIL 23-JAN-2017
     Route: 045
     Dates: start: 201611
  4. AMLODIPINE [Concomitant]
     Active Substance: AMLODIPINE BESYLATE
     Indication: HYPERTENSION
     Dosage: 1DF
     Route: 065
  5. RHINOCORT ALLERGY [Suspect]
     Active Substance: BUDESONIDE
     Indication: UPPER-AIRWAY COUGH SYNDROME
     Dosage: 2 SPRAYS IN EACH NOSTRIL; ABOUT MID NOVEMBER 2016 UNTIL 23-JAN-2017
     Route: 045
     Dates: start: 201611
  6. METOPROLOL. [Concomitant]
     Active Substance: METOPROLOL
     Indication: HYPERTENSION
     Dosage: 2DF
     Route: 065

REACTIONS (5)
  - Asthenia [Unknown]
  - Sneezing [Unknown]
  - Fatigue [Unknown]
  - Choking sensation [Unknown]
  - Drug ineffective [Unknown]
